FAERS Safety Report 8014249-2 (Version None)
Quarter: 2011Q4

REPORT INFORMATION
  Report Type: 
  Country: None (occurrence: None)
  Receive Date: 20111229
  Receipt Date: 20111223
  Transmission Date: 20120403
  Serious: Yes (Hospitalization)
  Sender: FDA-Public Use
  Company Number: BR-GLAXOSMITHKLINE-B0744753A

PATIENT
  Sex: Female
  Weight: 95 kg

DRUGS (6)
  1. DOLAMIN [Concomitant]
     Route: 048
     Dates: start: 20101101
  2. PARNATE [Suspect]
     Dosage: 10MG TWICE PER DAY
     Route: 048
     Dates: start: 20110530
  3. PARNATE [Suspect]
     Dosage: 10MG THREE TIMES PER DAY
     Route: 048
     Dates: start: 20110702
  4. PARNATE [Suspect]
     Dosage: 10MG FOUR TIMES PER DAY
     Route: 048
     Dates: start: 20110801
  5. CLONAZEPAM [Concomitant]
     Route: 048
     Dates: start: 20070101
  6. PARNATE [Suspect]
     Indication: DEPRESSION
     Dates: start: 20100101

REACTIONS (12)
  - WEIGHT INCREASED [None]
  - HUNGER [None]
  - DEPRESSED MOOD [None]
  - SOMNOLENCE [None]
  - PANIC REACTION [None]
  - NAUSEA [None]
  - PRODUCT QUALITY ISSUE [None]
  - ANXIETY [None]
  - DRUG INEFFECTIVE [None]
  - NIGHTMARE [None]
  - DEPRESSION [None]
  - CRYING [None]
